FAERS Safety Report 6952834-7 (Version None)
Quarter: 2010Q3

REPORT INFORMATION
  Report Type: 
  Country: None (occurrence: None)
  Receive Date: 20100829
  Receipt Date: 20100517
  Transmission Date: 20110219
  Serious: No
  Sender: FDA-Public Use
  Company Number: US-ABBOTT-10P-163-0646352-00

PATIENT
  Sex: Male
  Weight: 118.04 kg

DRUGS (1)
  1. NIASPAN [Suspect]
     Indication: PROPHYLAXIS
     Route: 048
     Dates: start: 20091101

REACTIONS (1)
  - FLUSHING [None]
